FAERS Safety Report 13268412 (Version 2)
Quarter: 2017Q1

REPORT INFORMATION
  Report Type: Spontaneous
  Country: IT (occurrence: IT)
  Receive Date: 20170224
  Receipt Date: 20170228
  Transmission Date: 20170428
  Serious: Yes (Disabling, Other)
  Sender: FDA-Public Use
  Company Number: PHHY2017IT025947

PATIENT
  Age: 70 Year
  Sex: Female

DRUGS (5)
  1. PANTOPRAZOLE [Concomitant]
     Active Substance: PANTOPRAZOLE SODIUM
     Indication: PRODUCT USED FOR UNKNOWN INDICATION
     Dosage: 40 MG, UNK
     Route: 065
  2. LUVION [Concomitant]
     Active Substance: CANRENONE
     Indication: PRODUCT USED FOR UNKNOWN INDICATION
     Route: 065
  3. AFINITOR [Suspect]
     Active Substance: EVEROLIMUS
     Indication: BREAST CANCER
     Dosage: 10 MG, QD
     Route: 048
     Dates: start: 20151228, end: 20170213
  4. DELTACORTENE [Concomitant]
     Active Substance: PREDNISONE
     Indication: PRODUCT USED FOR UNKNOWN INDICATION
     Dosage: 5 MG, UNK
     Route: 065
  5. EXEMESTANE. [Concomitant]
     Active Substance: EXEMESTANE
     Indication: BREAST CANCER
     Dosage: 25 MG, UNK
     Route: 048

REACTIONS (14)
  - Cough [Unknown]
  - Aortic dilatation [Unknown]
  - Aortic valve sclerosis [Unknown]
  - Palpitations [Unknown]
  - Dyspnoea [Not Recovered/Not Resolved]
  - Oedema peripheral [Unknown]
  - Aortic valve incompetence [Unknown]
  - Orthopnoea [Unknown]
  - Pulmonary hypertension [Unknown]
  - Congestive cardiomyopathy [Unknown]
  - Left ventricular dysfunction [Unknown]
  - Fatigue [Not Recovered/Not Resolved]
  - Left atrial enlargement [Unknown]
  - Mitral valve incompetence [Unknown]

NARRATIVE: CASE EVENT DATE: 20170127
